FAERS Safety Report 8798319 (Version 3)
Quarter: 2013Q2

REPORT INFORMATION
  Report Type: Spontaneous
  Country: US (occurrence: None)
  Receive Date: 20120913
  Receipt Date: 20130403
  Transmission Date: 20140414
  Serious: Yes (Other)
  Sender: FDA-Public Use
  Company Number: ADR-2012-01677

PATIENT
  Sex: Female

DRUGS (2)
  1. BACLOFEN [Suspect]
     Indication: MUSCLE SPASTICITY
     Dosage: 300 MCG/DAY
  2. BACLOFEN [Suspect]
     Indication: MULTIPLE SCLEROSIS
     Dosage: 300 MCG/DAY

REACTIONS (5)
  - Reaction to azo-dyes [None]
  - Underdose [None]
  - Mental status changes [None]
  - Confusional state [None]
  - Hypothermia [None]
